FAERS Safety Report 16242391 (Version 3)
Quarter: 2019Q2

REPORT INFORMATION
  Report Type: Spontaneous
  Country: ES (occurrence: ES)
  Receive Date: 20190426
  Receipt Date: 20190516
  Transmission Date: 20190711
  Serious: Yes (Other)
  Sender: FDA-Public Use
  Company Number: ES-HBP-2019ES018803

PATIENT
  Age: 47 Year

DRUGS (17)
  1. PUNTUAL [Concomitant]
  2. LACTITOL [Concomitant]
     Active Substance: LACTITOL
  3. ABSTRAL [Concomitant]
     Active Substance: FENTANYL CITRATE
     Dosage: 100 MICROGRAM, ON DAYS +13 AND +14
  4. DEXAMETHASONE. [Concomitant]
     Active Substance: DEXAMETHASONE
     Dosage: 8 MILLIGRAM, QD ON DAY +5
  5. LORAZEPAM. [Concomitant]
     Active Substance: LORAZEPAM
     Dosage: 0.5 MILLIGRAM, ONCE AT DAY -6, TWICE AT DAYS -5, -4, -3, -2, +3, +4 AND +5
  6. FENTANYL. [Concomitant]
     Active Substance: FENTANYL
     Dosage: 12 MICROGRAM ON DAY +7 AND 25 MCG ON DAY +14
     Route: 023
  7. AKYNZEO [Suspect]
     Active Substance: NETUPITANT\PALONOSETRON HYDROCHLORIDE
     Indication: PROPHYLAXIS OF NAUSEA AND VOMITING
     Dosage: 2 DOSAGE FORM, SINGLE
     Route: 048
     Dates: start: 20181123, end: 20181201
  8. ZOFRAN [Concomitant]
     Active Substance: ONDANSETRON HYDROCHLORIDE
  9. FOSAPREPITANT [Concomitant]
     Active Substance: FOSAPREPITANT
  10. CYCLOPHOSPHAMIDE. [Concomitant]
     Active Substance: CYCLOPHOSPHAMIDE
     Dosage: 50 MILLIGRAM/SQ. METER
     Dates: start: 20181201, end: 20181202
  11. PRIMPERAN [Concomitant]
     Active Substance: METOCLOPRAMIDE HYDROCHLORIDE
     Dosage: ONCE IN DAYS +1 AND +4, TWICE ON DAYS +5 AND +6, AND ONCE AT DAYS +7 AND +10
  12. GRANISETRON [Concomitant]
     Active Substance: GRANISETRON
  13. MOVICOL [Concomitant]
     Active Substance: POLYETHYLENE GLYCOL 3350\POTASSIUM CHLORIDE\SODIUM BICARBONATE\SODIUM CHLORIDE
     Dosage: ONCE AT DAYS -5 AND -4, DURING DAYS -3, -2, -1 AND 0 AT BREAKFAST, LUNCH AND DINNER, DURING DAYS +1
  14. MORPHINE HCL [Concomitant]
     Active Substance: MORPHINE HYDROCHLORIDE
  15. METHYLPREDISOLONE [Concomitant]
     Active Substance: METHYLPREDNISOLONE
     Dosage: 40 MILLIGRAM, QD DAY 0
  16. DEXAMETHASONE. [Concomitant]
     Active Substance: DEXAMETHASONE
     Dosage: 8 MILLIGRAM, QD ON DAYS -5,-4,-3,-2 AND +3
  17. BACLOFEN. [Concomitant]
     Active Substance: BACLOFEN

REACTIONS (1)
  - Neutropenic colitis [Unknown]

NARRATIVE: CASE EVENT DATE: 20181205
